FAERS Safety Report 13905507 (Version 1)
Quarter: 2017Q3

REPORT INFORMATION
  Report Type: Spontaneous
  Country: US (occurrence: None)
  Receive Date: 20170821
  Receipt Date: 20170821
  Transmission Date: 20171127
  Serious: Yes (Disabling, Other)
  Sender: FDA-Public Use
  Company Number: None

PATIENT
  Age: 82 Year
  Sex: Female
  Weight: 68.95 kg

DRUGS (4)
  1. CENTRUM SILVER [Concomitant]
     Active Substance: MINERALS\VITAMINS
  2. LISINOPRIL HCTZ 20-25MG [Suspect]
     Active Substance: HYDROCHLOROTHIAZIDE\LISINOPRIL
     Indication: BLOOD PRESSURE MEASUREMENT
     Dosage: ?          QUANTITY:90 ;?
     Route: 048
     Dates: start: 1998, end: 20130824
  3. NATURES BOUNTY FISH OIL [Concomitant]
  4. NATURES BOUNTY D3 [Concomitant]

REACTIONS (1)
  - Leukocytosis [None]
